FAERS Safety Report 7129015-X (Version None)
Quarter: 2010Q4

REPORT INFORMATION
  Report Type: 
  Country: None (occurrence: None)
  Receive Date: 20101130
  Receipt Date: 20101119
  Transmission Date: 20110411
  Serious: Yes (Other)
  Sender: FDA-Public Use
  Company Number: CA-JNJFOC-20100902396

PATIENT
  Sex: Female

DRUGS (5)
  1. TRAMADOL HCL [Suspect]
     Indication: ILL-DEFINED DISORDER
     Route: 065
  2. SYNTHROID [Concomitant]
     Indication: HYPOTHYROIDISM
  3. CELEXA [Concomitant]
     Indication: DEPRESSION
  4. NEXIUM [Concomitant]
     Indication: GASTROOESOPHAGEAL REFLUX DISEASE
  5. ATIVAN [Concomitant]
     Indication: ANXIETY

REACTIONS (4)
  - DIARRHOEA [None]
  - FATIGUE [None]
  - THYROID DISORDER [None]
  - WEIGHT DECREASED [None]
